FAERS Safety Report 9814300 (Version 3)
Quarter: 2014Q1

REPORT INFORMATION
  Report Type: Spontaneous
  Country: US (occurrence: US)
  Receive Date: 20140113
  Receipt Date: 20140117
  Transmission Date: 20141002
  Serious: Yes (Death, Hospitalization, Other)
  Sender: FDA-Public Use
  Company Number: US-DENDREON CORPORATION-2013PROUSA03412

PATIENT
  Age: 76 Year
  Sex: Male
  Weight: 63.5 kg

DRUGS (6)
  1. PROVENGE [Suspect]
     Indication: PROSTATE CANCER METASTATIC
     Dosage: 250 ML, SINGLE
     Route: 042
     Dates: start: 20131114, end: 20131114
  2. PROVENGE [Suspect]
     Dosage: 250 ML, SINGLE
     Route: 042
     Dates: start: 20131219, end: 20131219
  3. METOPROLOL [Concomitant]
     Indication: TACHYCARDIA
     Dosage: 50 MG, QD
     Route: 048
  4. CARDIZEM [Concomitant]
     Indication: TACHYCARDIA
     Dosage: UNK, QD
     Route: 048
  5. MULTIVITAMIN [Concomitant]
     Indication: PRODUCT USED FOR UNKNOWN INDICATION
  6. LEUPROLIDE ACE [Concomitant]
     Indication: PROSTATE CANCER METASTATIC

REACTIONS (15)
  - Death [Fatal]
  - Cardiac failure congestive [Unknown]
  - Hypotension [Unknown]
  - Coagulopathy [Unknown]
  - Gastrointestinal haemorrhage [Unknown]
  - Renal failure [Unknown]
  - White blood cell count increased [Unknown]
  - Dehydration [Unknown]
  - Anaemia [Unknown]
  - Asthenia [Unknown]
  - Fatigue [Unknown]
  - Troponin increased [Unknown]
  - Staphylococcal bacteraemia [Unknown]
  - Fall [Unknown]
  - Liver disorder [Unknown]
